FAERS Safety Report 14024473 (Version 2)
Quarter: 2017Q4

REPORT INFORMATION
  Report Type: Spontaneous
  Country: KR (occurrence: KR)
  Receive Date: 20170929
  Receipt Date: 20171005
  Transmission Date: 20180321
  Serious: Yes (Death)
  Sender: FDA-Public Use
  Company Number: KR-JAZZ-2017-KR-012411

PATIENT
  Sex: Female

DRUGS (1)
  1. DEFITELIO [Suspect]
     Active Substance: DEFIBROTIDE SODIUM
     Indication: VENOOCCLUSIVE DISEASE
     Dosage: UNK
     Route: 042
     Dates: start: 20170913, end: 20170919

REACTIONS (1)
  - Venoocclusive disease [Fatal]

NARRATIVE: CASE EVENT DATE: 20170919
